FAERS Safety Report 5900490-9 (Version None)
Quarter: 2008Q3

REPORT INFORMATION
  Report Type: 
  Country: None (occurrence: None)
  Receive Date: 20080926
  Receipt Date: 20080922
  Transmission Date: 20090109
  Serious: Yes (Hospitalization, Other)
  Sender: FDA-Public Use
  Company Number: CN-ROXANE LABORATORIES, INC.-2008-RO-00064RO

PATIENT
  Age: 62 Year
  Sex: Female

DRUGS (6)
  1. DEXAMETHASONE [Suspect]
     Indication: MULTIPLE MYELOMA
  2. DEXAMETHASONE [Suspect]
     Indication: PLASMACYTOMA
     Dosage: 20MG
     Dates: start: 20060101
  3. VINCRISTINE [Suspect]
     Indication: PLASMACYTOMA
  4. ADRIAMYCIN PFS [Suspect]
     Indication: PLASMACYTOMA
  5. BORTEZOMIB [Concomitant]
     Indication: MULTIPLE MYELOMA
     Dates: start: 20060101
  6. THALIDOMIDE [Concomitant]
     Indication: MULTIPLE MYELOMA
     Dosage: 200MG
     Dates: start: 20060101

REACTIONS (5)
  - BLOOD CREATININE INCREASED [None]
  - IMMUNOGLOBULINS ABNORMAL [None]
  - MULTIPLE MYELOMA [None]
  - PYREXIA [None]
  - TUMOUR LYSIS SYNDROME [None]
